FAERS Safety Report 5329008-9 (Version None)
Quarter: 2007Q2

REPORT INFORMATION
  Report Type: 
  Country: None (occurrence: None)
  Receive Date: 20070518
  Receipt Date: 20070508
  Transmission Date: 20071010
  Serious: Yes (Death, Hospitalization, Other)
  Sender: FDA-Public Use
  Company Number: US-PFIZER INC-2006134787

PATIENT
  Sex: Female

DRUGS (3)
  1. CELEBREX [Suspect]
     Indication: PAIN
     Dates: start: 20020501
  2. BEXTRA [Suspect]
     Indication: PAIN
     Dates: start: 20020902, end: 20030730
  3. VIOXX [Suspect]
     Dates: start: 20030902, end: 20031103

REACTIONS (2)
  - DEPRESSION [None]
  - ISCHAEMIC STROKE [None]
